FAERS Safety Report 10765102 (Version 1)
Quarter: 2015Q1

REPORT INFORMATION
  Report Type: Spontaneous
  Country: IT (occurrence: None)
  Receive Date: 20150203
  Receipt Date: 20150203
  Transmission Date: 20150721
  Serious: Yes (Hospitalization)
  Sender: FDA-Public Use
  Company Number: 2015SGN00129

PATIENT
  Age: 79 Year
  Sex: Male

DRUGS (7)
  1. CARDIOASPIRIN (ACETYLSALICYLIC ACID) [Concomitant]
     Active Substance: ASPIRIN
  2. KAYEXALATE [Concomitant]
     Active Substance: SODIUM POLYSTYRENE SULFONATE
  3. BACTRIM (SULFAMETHOXAZOLE TRIMETHOPRIM) [Concomitant]
  4. ALLOPURINOL(ALLOPURINOL) [Concomitant]
  5. ADCETRIS [Suspect]
     Active Substance: BRENTUXIMAB VEDOTIN
     Indication: ANAPLASTIC LARGE-CELL LYMPHOMA
     Dosage: 1.2 MG/KG, QCYCLE, IINTRAVENOUS
     Route: 042
     Dates: start: 20141024, end: 20141205
  6. NEBIVOLOLO ACTAVIS (NEBIBOLOL HYDROCHLORIDE) [Concomitant]
  7. LASIX [Concomitant]
     Active Substance: FUROSEMIDE

REACTIONS (3)
  - Ejection fraction decreased [None]
  - Pulmonary oedema [None]
  - Dyspnoea [None]

NARRATIVE: CASE EVENT DATE: 20141210
